FAERS Safety Report 5719655-4 (Version None)
Quarter: 2008Q2

REPORT INFORMATION
  Report Type: 
  Country: None (occurrence: None)
  Receive Date: 20080425
  Receipt Date: 20080425
  Transmission Date: 20081010
  Serious: No
  Sender: FDA-Public Use
  Company Number: None

PATIENT
  Age: 90 Year
  Sex: Male
  Weight: 65.32 kg

DRUGS (1)
  1. TERAZOSIN HCL [Suspect]
     Indication: BENIGN PROSTATIC HYPERPLASIA
     Dosage: 2 MG AT BEDTIME PO
     Route: 048
     Dates: start: 20070620, end: 20080423

REACTIONS (2)
  - DIZZINESS [None]
  - HYPOTENSION [None]
